FAERS Safety Report 7360925-4 (Version None)
Quarter: 2011Q1

REPORT INFORMATION
  Report Type: 
  Country: None (occurrence: None)
  Receive Date: 20110318
  Receipt Date: 20110307
  Transmission Date: 20110831
  Serious: Yes (Hospitalization, Other)
  Sender: FDA-Public Use
  Company Number: PHHY2010FR67281

PATIENT
  Sex: Male

DRUGS (9)
  1. ESIDRIX [Suspect]
     Indication: HYPERTENSION
     Dosage: 25 MG, QD
     Route: 048
     Dates: end: 20100902
  2. SIMVASTATIN [Suspect]
     Indication: DYSLIPIDAEMIA
     Dosage: 40 MG, QD
     Route: 048
     Dates: end: 20100907
  3. LANTUS [Concomitant]
     Dosage: 22 IU, QD
  4. COUMADIN [Concomitant]
     Dosage: 8 MG/DAY
  5. ATENOLOL [Concomitant]
     Dosage: 100 MG, QD
  6. METFORMIN HCL [Concomitant]
     Dosage: 1000 MG, TID
  7. ZESTRIL [Concomitant]
     Dosage: 10 MG, QD
  8. HYPERIUM [Concomitant]
     Dosage: 1 MG, QD
  9. AMLOR [Concomitant]
     Dosage: 10 MG, QD

REACTIONS (25)
  - METAPLASIA [None]
  - DYSPNOEA [None]
  - INFLAMMATION [None]
  - TACHYPNOEA [None]
  - CYTOMEGALOVIRUS TEST POSITIVE [None]
  - INTERSTITIAL LUNG DISEASE [None]
  - RALES [None]
  - PROCALCITONIN INCREASED [None]
  - RESPIRATORY ACIDOSIS [None]
  - CHEST DISCOMFORT [None]
  - C-REACTIVE PROTEIN INCREASED [None]
  - HYPOXIA [None]
  - PLEURAL EFFUSION [None]
  - ACUTE RESPIRATORY DISTRESS SYNDROME [None]
  - RESPIRATORY FAILURE [None]
  - LYMPHADENOPATHY [None]
  - OXYGEN SATURATION DECREASED [None]
  - USE OF ACCESSORY RESPIRATORY MUSCLES [None]
  - PO2 DECREASED [None]
  - HYPERTENSIVE CARDIOMYOPATHY [None]
  - PULMONARY EMBOLISM [None]
  - BREATHING-RELATED SLEEP DISORDER [None]
  - WHITE BLOOD CELL COUNT INCREASED [None]
  - BREATH SOUNDS ABNORMAL [None]
  - PROSTATIC SPECIFIC ANTIGEN INCREASED [None]
